APPROVED DRUG PRODUCT: QUINAPRIL HYDROCHLORIDE AND HYDROCHLOROTHIAZIDE
Active Ingredient: HYDROCHLOROTHIAZIDE; QUINAPRIL HYDROCHLORIDE
Strength: 12.5MG;EQ 10MG BASE
Dosage Form/Route: TABLET;ORAL
Application: A077093 | Product #001
Applicant: PHARMOBEDIENT CONSULTING LLC
Approved: Mar 28, 2005 | RLD: No | RS: No | Type: DISCN